FAERS Safety Report 13226793 (Version 1)
Quarter: 2017Q1

REPORT INFORMATION
  Report Type: Spontaneous
  Country: CH (occurrence: CH)
  Receive Date: 20170213
  Receipt Date: 20170213
  Transmission Date: 20170428
  Serious: Yes (Hospitalization)
  Sender: FDA-Public Use
  Company Number: CH-TEVA-736501ISR

PATIENT
  Age: 86 Year
  Sex: Male
  Weight: 70 kg

DRUGS (9)
  1. METFIN [Suspect]
     Active Substance: METFORMIN HYDROCHLORIDE
     Dosage: 1000 MILLIGRAM DAILY;
     Route: 065
     Dates: start: 20160711
  2. SOTALOL MEPHA [Suspect]
     Active Substance: SOTALOL HYDROCHLORIDE
     Dosage: 1.5 DOSAGES EVERY 2 DAYS
     Route: 065
     Dates: start: 20150211
  3. LERCANIDIPINE [Suspect]
     Active Substance: LERCANIDIPINE
     Dosage: 5 MILLIGRAM DAILY;
     Route: 065
     Dates: start: 20161217
  4. EXELON PATCH [Suspect]
     Active Substance: RIVASTIGMINE
     Dosage: .5 MILLIGRAM DAILY;
     Dates: start: 20161003
  5. RANEXA [Suspect]
     Active Substance: RANOLAZINE
     Dosage: 714 MILLIGRAM DAILY;
     Route: 065
     Dates: start: 20150107
  6. OMEPRAZOL [Concomitant]
     Active Substance: OMEPRAZOLE
     Dosage: 40 MILLIGRAM DAILY;
     Route: 065
     Dates: start: 20161127
  7. PERINDOPRIL [Suspect]
     Active Substance: PERINDOPRIL
     Dosage: 8 MILLIGRAM DAILY;
     Route: 065
     Dates: start: 20160523
  8. TRESIBA [Suspect]
     Active Substance: INSULIN DEGLUDEC
     Dosage: 16 IU (INTERNATIONAL UNIT) DAILY;
     Route: 065
     Dates: start: 20151216
  9. XARELTO [Suspect]
     Active Substance: RIVAROXABAN
     Indication: ATRIAL FIBRILLATION
     Dosage: 20 MILLIGRAM DAILY;
     Route: 048
     Dates: start: 20140807

REACTIONS (2)
  - Fall [Not Recovered/Not Resolved]
  - Subdural haematoma [Recovering/Resolving]

NARRATIVE: CASE EVENT DATE: 201612
